FAERS Safety Report 5755849-X (Version None)
Quarter: 2008Q2

REPORT INFORMATION
  Report Type: 
  Country: None (occurrence: None)
  Receive Date: 20080528
  Receipt Date: 20080521
  Transmission Date: 20081010
  Serious: Yes (Other)
  Sender: FDA-Public Use
  Company Number: SP01920

PATIENT
  Age: 83 Year
  Sex: Male

DRUGS (6)
  1. VISICOL [Suspect]
     Indication: COLONOSCOPY
     Dosage: 40 GM, ORAL
     Route: 048
     Dates: start: 20080422, end: 20080422
  2. METOCLOPRAMIDE [Concomitant]
  3. DIASTASE COMBINED DRUG [Concomitant]
  4. DIMETICONE [Concomitant]
  5. SENNOSIDE [Concomitant]
  6. SODIUM PICOSULFATE [Concomitant]

REACTIONS (3)
  - BLOOD PRESSURE DECREASED [None]
  - SHOCK [None]
  - VOMITING [None]
